FAERS Safety Report 5489276-X (Version None)
Quarter: 2007Q4

REPORT INFORMATION
  Report Type: 
  Country: None (occurrence: None)
  Receive Date: 20071016
  Receipt Date: 20070924
  Transmission Date: 20080405
  Serious: Yes (Hospitalization)
  Sender: FDA-Public Use
  Company Number: COM 07-003

PATIENT
  Sex: Male

DRUGS (1)
  1. REESE'S PINWORM MEDICINE, PYRANTEL PAMOATE 144MG/ML MANUFACTURER - ELG [Suspect]
     Indication: ENTEROBIASIS
     Dosage: 88-112 LBS 2 TSP; 188-OVER LBS 4 TSP
     Dates: start: 20070821

REACTIONS (2)
  - ILEUS PARALYTIC [None]
  - SELF-MEDICATION [None]
